FAERS Safety Report 5278398-4 (Version None)
Quarter: 2007Q1

REPORT INFORMATION
  Report Type: 
  Country: None (occurrence: None)
  Receive Date: 20061213
  Receipt Date: 20030930
  Transmission Date: 20070707
  Serious: No
  Sender: FDA-Public Use
  Company Number: 2003UW04137

PATIENT
  Age: 56 Year
  Sex: Female

DRUGS (7)
  1. SEROQUEL [Suspect]
     Dosage: 400 MG BID PO
     Route: 048
     Dates: start: 20010525
  2. GLUCOPHAGE [Concomitant]
  3. LIPITOR [Concomitant]
  4. PAXIL [Concomitant]
  5. TRAZODONE HCL [Concomitant]
  6. WELLBUTRIN [Concomitant]
  7. BUSPAR [Concomitant]

REACTIONS (1)
  - CATARACT [None]
